FAERS Safety Report 4865078-X (Version None)
Quarter: 2005Q4

REPORT INFORMATION
  Report Type: 
  Country: None (occurrence: None)
  Receive Date: 20051219
  Receipt Date: 20051209
  Transmission Date: 20060501
  Serious: Yes (Death)
  Sender: FDA-Public Use
  Company Number: 05H-028-0304132-00

PATIENT
  Age: 27 Year
  Sex: Female
  Weight: 104 kg

DRUGS (2)
  1. MARCAINE SPINAL INJECTION (BUPIVACAINE/DEXTROSE) (BUPIVACAINE/DEXTROSE [Suspect]
     Indication: SPINAL ANAESTHESIA
     Dosage: ONCE, INTRASPINAL
     Route: 024
     Dates: start: 20051208, end: 20051208
  2. FENTANYL [Suspect]
     Dosage: ONCE, INTRASPINAL
     Dates: start: 20051208, end: 20051208

REACTIONS (11)
  - CARDIO-RESPIRATORY ARREST [None]
  - CHEST DISCOMFORT [None]
  - CYANOSIS [None]
  - DRUG EXPOSURE DURING PREGNANCY [None]
  - DYSPNOEA [None]
  - HAEMORRHAGE [None]
  - HYPOTENSION [None]
  - OBSTETRICAL PULMONARY EMBOLISM [None]
  - OXYGEN SATURATION DECREASED [None]
  - PULMONARY OEDEMA [None]
  - SINUS BRADYCARDIA [None]
